FAERS Safety Report 12416409 (Version 1)
Quarter: 2016Q2

REPORT INFORMATION
  Report Type: Report from Study
  Country: US (occurrence: US)
  Receive Date: 20160530
  Receipt Date: 20160530
  Transmission Date: 20160815
  Serious: Yes (Hospitalization)
  Sender: FDA-Public Use
  Company Number: PHHY2014US144025

PATIENT
  Age: 0 Day
  Sex: Male
  Weight: 4.18 kg

DRUGS (5)
  1. OMALIZUMAB [Suspect]
     Active Substance: OMALIZUMAB
     Indication: PRODUCT USED FOR UNKNOWN INDICATION
     Dosage: UNK
     Route: 064
  2. AMOXICILLIN. [Suspect]
     Active Substance: AMOXICILLIN
     Indication: PRODUCT USED FOR UNKNOWN INDICATION
     Route: 065
  3. TYLENOL [Concomitant]
     Active Substance: ACETAMINOPHEN
     Indication: TEETHING
     Dosage: UNK
     Route: 048
  4. OMALIZUMAB [Suspect]
     Active Substance: OMALIZUMAB
     Dosage: UNK
     Route: 063
  5. TYLENOL [Concomitant]
     Active Substance: ACETAMINOPHEN
     Indication: CIRCUMCISION
     Dosage: UNK, PRN (AS NEEDED)
     Route: 048
     Dates: start: 20141024

REACTIONS (10)
  - Foetal exposure during pregnancy [Unknown]
  - Jaundice neonatal [Recovered/Resolved]
  - Ear infection [Unknown]
  - Bronchiolitis [Unknown]
  - Exposure during breast feeding [Unknown]
  - Viral infection [Unknown]
  - Plagiocephaly [Recovered/Resolved]
  - Food allergy [Unknown]
  - Eczema [Unknown]
  - Drug hypersensitivity [Unknown]

NARRATIVE: CASE EVENT DATE: 20141024
